FAERS Safety Report 6182733-2 (Version None)
Quarter: 2009Q2

REPORT INFORMATION
  Report Type: 
  Country: None (occurrence: None)
  Receive Date: 20090505
  Receipt Date: 20090424
  Transmission Date: 20091009
  Serious: Yes (Hospitalization)
  Sender: FDA-Public Use
  Company Number: GXKR2009GB05069

PATIENT
  Age: 63 Year
  Sex: Male
  Weight: 80 kg

DRUGS (4)
  1. OMEPRAZOLE [Suspect]
     Indication: DYSPEPSIA
     Dosage: 20 MG, ORAL
     Route: 048
     Dates: start: 20041101, end: 20050601
  2. CRESTOR [Suspect]
     Indication: BLOOD CHOLESTEROL INCREASED
     Dosage: 10 MG/DAY, ORAL
     Route: 048
     Dates: start: 20040317, end: 20041116
  3. CRESTOR [Suspect]
     Indication: MYOCARDIAL ISCHAEMIA
     Dosage: 10 MG/DAY, ORAL
     Route: 048
     Dates: start: 20040317, end: 20041116
  4. ACETYLSALICYLIC ACID SRT [Concomitant]

REACTIONS (5)
  - ABDOMINAL DISTENSION [None]
  - DIARRHOEA [None]
  - HYDRONEPHROSIS [None]
  - NEPHROSTOMY TUBE PLACEMENT [None]
  - RETROPERITONEAL FIBROSIS [None]
